FAERS Safety Report 4525697-7 (Version None)
Quarter: 2004Q4

REPORT INFORMATION
  Report Type: 
  Country: None (occurrence: None)
  Receive Date: 20041116
  Receipt Date: 20041013
  Transmission Date: 20050328
  Serious: No
  Sender: FDA-Public Use
  Company Number: S04-USA-06763-01

PATIENT
  Age: 84 Year
  Sex: Female

DRUGS (7)
  1. NAMENDA [Suspect]
     Indication: AMNESIA
     Dosage: 5 MG BID PO
     Route: 048
     Dates: start: 20041012
  2. NAMENDA [Suspect]
     Indication: AMNESIA
     Dosage: 5 MG QD PO
     Route: 048
     Dates: start: 20041005, end: 20041011
  3. ARICEPT [Concomitant]
  4. PLAVIX [Concomitant]
  5. LOVASTATIN [Concomitant]
  6. MIRTAZAPINE [Concomitant]
  7. LEVOXYL [Concomitant]

REACTIONS (3)
  - ANXIETY [None]
  - DIZZINESS [None]
  - INSOMNIA [None]
